FAERS Safety Report 7672642-1 (Version None)
Quarter: 2011Q3

REPORT INFORMATION
  Report Type: 
  Country: None (occurrence: None)
  Receive Date: 20110809
  Receipt Date: 20110804
  Transmission Date: 20111222
  Serious: Yes (Hospitalization, Other)
  Sender: FDA-Public Use
  Company Number: DE-PFIZER INC-2011155475

PATIENT
  Age: 81 Year
  Sex: Female
  Weight: 62 kg

DRUGS (6)
  1. RISPERIDONE [Suspect]
     Dosage: 1MG, DAILY
     Route: 048
     Dates: start: 20110528, end: 20110608
  2. SIMVASTATIN [Concomitant]
     Dosage: 20 MG, 1X/DAY
     Route: 048
     Dates: start: 20100101
  3. ARTELAC [Concomitant]
     Dosage: 1 GTT, 1X/DAY, PER EYE
     Route: 047
     Dates: start: 20080401
  4. DULCOLAX [Concomitant]
     Dosage: 5 MG, 2-3 X WEEKLY
     Route: 048
     Dates: start: 20101001, end: 20110322
  5. IBUPROFEN [Suspect]
     Dosage: 600 MG, AT LEAST ONCE WEEKLY
     Route: 048
     Dates: start: 20100909, end: 20110531
  6. MELPERONE [Suspect]
     Indication: ANXIETY DISORDER
     Dosage: 20-50 MG
     Route: 048
     Dates: start: 20110318, end: 20110321

REACTIONS (3)
  - CHOLELITHIASIS [None]
  - HEPATIC STEATOSIS [None]
  - HEPATITIS ACUTE [None]
